FAERS Safety Report 5039477-X (Version None)
Quarter: 2006Q2

REPORT INFORMATION
  Report Type: 
  Country: None (occurrence: None)
  Receive Date: 20060629
  Receipt Date: 20060622
  Transmission Date: 20061013
  Serious: Yes (Other)
  Sender: FDA-Public Use
  Company Number: BW-BRISTOL-MYERS SQUIBB COMPANY-13422415

PATIENT
  Age: 33 Year
  Sex: Female

DRUGS (2)
  1. EFAVIRENZ [Suspect]
     Indication: HIV INFECTION
     Dates: start: 20041117
  2. COMBIVIR [Suspect]
     Indication: HIV INFECTION
     Dates: start: 20041117

REACTIONS (3)
  - CONFUSIONAL STATE [None]
  - PULMONARY TUBERCULOSIS [None]
  - TREMOR [None]
